FAERS Safety Report 4283258-1 (Version None)
Quarter: 2004Q1

REPORT INFORMATION
  Report Type: 
  Country: None (occurrence: None)
  Receive Date: 20040129
  Receipt Date: 20031215
  Transmission Date: 20041129
  Serious: No
  Sender: FDA-Public Use
  Company Number: 2003AP03473

PATIENT
  Age: 74 Year
  Sex: Male

DRUGS (3)
  1. DIPRIVAN [Suspect]
     Indication: GENERAL ANAESTHESIA
  2. FENTANYL [Concomitant]
  3. VECURONIUM BROMIDE [Concomitant]

REACTIONS (1)
  - SICK SINUS SYNDROME [None]
